FAERS Safety Report 25610408 (Version 1)
Quarter: 2025Q3

REPORT INFORMATION
  Report Type: Spontaneous
  Country: US (occurrence: US)
  Receive Date: 20250728
  Receipt Date: 20250728
  Transmission Date: 20251021
  Serious: No
  Sender: ROCHE
  Company Number: US-ROCHE-10000344868

PATIENT
  Age: 7 Year

DRUGS (2)
  1. POLIVY [Suspect]
     Active Substance: POLATUZUMAB VEDOTIN-PIIQ
     Indication: Burkitt^s leukaemia
     Route: 065
     Dates: start: 20250703
  2. POLIVY [Suspect]
     Active Substance: POLATUZUMAB VEDOTIN-PIIQ
     Indication: Burkitt^s lymphoma refractory

REACTIONS (2)
  - Off label use [Unknown]
  - No adverse event [Unknown]
